FAERS Safety Report 16134089 (Version 1)
Quarter: 2019Q1

REPORT INFORMATION
  Report Type: Spontaneous
  Country: US (occurrence: US)
  Receive Date: 20190329
  Receipt Date: 20190329
  Transmission Date: 20190418
  Serious: No
  Sender: FDA-Public Use
  Company Number: US-BAUSCH-BL-2018-017063

PATIENT
  Sex: Female
  Weight: 86 kg

DRUGS (3)
  1. TRETINOIN GEL 0.01% [Suspect]
     Active Substance: TRETINOIN
     Indication: SKIN WRINKLING
     Dosage: 20 GRAM TUBE, MAY BE ONCE A WEEK
     Route: 061
     Dates: start: 2017
  2. TRETINOIN GEL 0.01% [Suspect]
     Active Substance: TRETINOIN
     Indication: OFF LABEL USE
  3. TRETINOIN GEL 0.01% [Suspect]
     Active Substance: TRETINOIN
     Indication: SKIN TEXTURE ABNORMAL
     Dosage: 20 GRAM TUBE, MAY BE ONCE A WEEK
     Route: 061
     Dates: start: 201806

REACTIONS (3)
  - Expired product administered [Not Recovered/Not Resolved]
  - Application site dryness [Not Recovered/Not Resolved]
  - Product use in unapproved indication [Not Recovered/Not Resolved]

NARRATIVE: CASE EVENT DATE: 2017
